FAERS Safety Report 4965822-7 (Version None)
Quarter: 2006Q2

REPORT INFORMATION
  Report Type: 
  Country: None (occurrence: None)
  Receive Date: 20060405
  Receipt Date: 20060405
  Transmission Date: 20061013
  Serious: Yes (Hospitalization)
  Sender: FDA-Public Use
  Company Number: None

PATIENT
  Age: 52 Year
  Sex: Male
  Weight: 83 kg

DRUGS (1)
  1. RAPAMYCIN [Suspect]

REACTIONS (3)
  - ASCITES [None]
  - BILE DUCT OBSTRUCTION [None]
  - BLOOD BILIRUBIN INCREASED [None]
